FAERS Safety Report 6933731-X (Version None)
Quarter: 2010Q3

REPORT INFORMATION
  Report Type: 
  Country: None (occurrence: None)
  Receive Date: 20100820
  Receipt Date: 20100817
  Transmission Date: 20110219
  Serious: Yes (Life-Threatening)
  Sender: FDA-Public Use
  Company Number: CH-JNJFOC-20100806288

PATIENT
  Sex: Male
  Weight: 45 kg

DRUGS (2)
  1. USTEKINUMAB [Suspect]
     Indication: PSORIASIS
     Route: 058
  2. USTEKINUMAB [Suspect]
     Route: 058

REACTIONS (2)
  - GASTRIC CANCER [None]
  - OESOPHAGEAL ADENOCARCINOMA [None]
